FAERS Safety Report 25025102 (Version 2)
Quarter: 2025Q2

REPORT INFORMATION
  Report Type: Spontaneous
  Country: PL (occurrence: PL)
  Receive Date: 20250228
  Receipt Date: 20250423
  Transmission Date: 20250717
  Serious: Yes (Hospitalization, Other)
  Sender: MYLAN
  Company Number: PL-ARISTO PHARMA-ESOM202501301

PATIENT
  Age: 78 Year
  Sex: Male

DRUGS (48)
  1. ESOMEPRAZOLE [Suspect]
     Active Substance: ESOMEPRAZOLE
     Indication: Product used for unknown indication
  2. ESOMEPRAZOLE [Suspect]
     Active Substance: ESOMEPRAZOLE
     Route: 065
  3. ESOMEPRAZOLE [Suspect]
     Active Substance: ESOMEPRAZOLE
     Route: 065
  4. ESOMEPRAZOLE [Suspect]
     Active Substance: ESOMEPRAZOLE
  5. FINASTERIDE [Suspect]
     Active Substance: FINASTERIDE
     Indication: Benign prostatic hyperplasia
  6. FINASTERIDE [Suspect]
     Active Substance: FINASTERIDE
     Route: 065
  7. FINASTERIDE [Suspect]
     Active Substance: FINASTERIDE
     Route: 065
  8. FINASTERIDE [Suspect]
     Active Substance: FINASTERIDE
  9. DOXAZOSIN [Suspect]
     Active Substance: DOXAZOSIN MESYLATE
     Indication: Benign prostatic hyperplasia
  10. DOXAZOSIN [Suspect]
     Active Substance: DOXAZOSIN MESYLATE
     Route: 065
  11. DOXAZOSIN [Suspect]
     Active Substance: DOXAZOSIN MESYLATE
     Route: 065
  12. DOXAZOSIN [Suspect]
     Active Substance: DOXAZOSIN MESYLATE
  13. ALLOPURINOL [Suspect]
     Active Substance: ALLOPURINOL
     Indication: Product used for unknown indication
  14. ALLOPURINOL [Suspect]
     Active Substance: ALLOPURINOL
     Route: 065
  15. ALLOPURINOL [Suspect]
     Active Substance: ALLOPURINOL
     Route: 065
  16. ALLOPURINOL [Suspect]
     Active Substance: ALLOPURINOL
  17. POTASSIUM [Suspect]
     Active Substance: POTASSIUM
     Indication: Product used for unknown indication
  18. POTASSIUM [Suspect]
     Active Substance: POTASSIUM
     Route: 065
  19. POTASSIUM [Suspect]
     Active Substance: POTASSIUM
     Route: 065
  20. POTASSIUM [Suspect]
     Active Substance: POTASSIUM
  21. FOLIC ACID [Suspect]
     Active Substance: FOLIC ACID
     Indication: Product used for unknown indication
  22. FOLIC ACID [Suspect]
     Active Substance: FOLIC ACID
     Route: 065
  23. FOLIC ACID [Suspect]
     Active Substance: FOLIC ACID
     Route: 065
  24. FOLIC ACID [Suspect]
     Active Substance: FOLIC ACID
  25. IRON [Suspect]
     Active Substance: IRON
     Indication: Product used for unknown indication
     Dosage: 28 MILLIGRAM, QD (ONCE A DAY)
  26. IRON [Suspect]
     Active Substance: IRON
     Dosage: 28 MILLIGRAM, QD (ONCE A DAY)
     Route: 042
  27. IRON [Suspect]
     Active Substance: IRON
     Dosage: 28 MILLIGRAM, QD (ONCE A DAY)
     Route: 042
  28. IRON [Suspect]
     Active Substance: IRON
     Dosage: 28 MILLIGRAM, QD (ONCE A DAY)
  29. ASCORBIC ACID [Suspect]
     Active Substance: ASCORBIC ACID
     Indication: Product used for unknown indication
  30. ASCORBIC ACID [Suspect]
     Active Substance: ASCORBIC ACID
     Route: 065
  31. ASCORBIC ACID [Suspect]
     Active Substance: ASCORBIC ACID
     Route: 065
  32. ASCORBIC ACID [Suspect]
     Active Substance: ASCORBIC ACID
  33. VITAMIN B6 [Suspect]
     Active Substance: PYRIDOXINE HYDROCHLORIDE
     Indication: Product used for unknown indication
  34. VITAMIN B6 [Suspect]
     Active Substance: PYRIDOXINE HYDROCHLORIDE
     Route: 065
  35. VITAMIN B6 [Suspect]
     Active Substance: PYRIDOXINE HYDROCHLORIDE
     Route: 065
  36. VITAMIN B6 [Suspect]
     Active Substance: PYRIDOXINE HYDROCHLORIDE
  37. VITAMIN B12 [Suspect]
     Active Substance: CYANOCOBALAMIN
     Indication: Product used for unknown indication
  38. VITAMIN B12 [Suspect]
     Active Substance: CYANOCOBALAMIN
     Route: 065
  39. VITAMIN B12 [Suspect]
     Active Substance: CYANOCOBALAMIN
     Route: 065
  40. VITAMIN B12 [Suspect]
     Active Substance: CYANOCOBALAMIN
  41. GLICLAZIDE [Concomitant]
     Active Substance: GLICLAZIDE
     Indication: Type 2 diabetes mellitus
  42. GLICLAZIDE [Concomitant]
     Active Substance: GLICLAZIDE
     Route: 065
  43. GLICLAZIDE [Concomitant]
     Active Substance: GLICLAZIDE
     Route: 065
  44. GLICLAZIDE [Concomitant]
     Active Substance: GLICLAZIDE
  45. AMLODIPINE\PERINDOPRIL [Concomitant]
     Active Substance: AMLODIPINE\PERINDOPRIL
     Indication: Hypertension
  46. AMLODIPINE\PERINDOPRIL [Concomitant]
     Active Substance: AMLODIPINE\PERINDOPRIL
     Route: 065
  47. AMLODIPINE\PERINDOPRIL [Concomitant]
     Active Substance: AMLODIPINE\PERINDOPRIL
     Route: 065
  48. AMLODIPINE\PERINDOPRIL [Concomitant]
     Active Substance: AMLODIPINE\PERINDOPRIL

REACTIONS (6)
  - Pneumonia [Unknown]
  - Myelodysplastic syndrome [Unknown]
  - Gastrointestinal disorder [Unknown]
  - Pain [Unknown]
  - Normocytic anaemia [Unknown]
  - Medication error [Unknown]
